FAERS Safety Report 16710701 (Version 1)
Quarter: 2019Q3

REPORT INFORMATION
  Report Type: Spontaneous
  Country: FR (occurrence: FR)
  Receive Date: 20190816
  Receipt Date: 20190816
  Transmission Date: 20191004
  Serious: Yes (Hospitalization)
  Sender: FDA-Public Use
  Company Number: FR-MYLANLABS-2019M1075475

PATIENT
  Age: 17 Year
  Sex: Female
  Weight: 56 kg

DRUGS (3)
  1. VANCOMYCIN [Suspect]
     Active Substance: VANCOMYCIN
     Indication: PRODUCT USED FOR UNKNOWN INDICATION
     Dosage: 1800 MILLIGRAM, TOTAL
     Route: 042
     Dates: start: 20190219, end: 20190219
  2. HEPARINE SODIQUE [Suspect]
     Active Substance: HEPARIN SODIUM
     Indication: CATHETERISATION CARDIAC
     Dosage: 4000 INTERNATIONAL UNIT, TOTAL
     Route: 040
     Dates: start: 20190219, end: 20190219
  3. OMNIPAQUE [Suspect]
     Active Substance: IOHEXOL
     Indication: CATHETERISATION CARDIAC
     Dosage: INCONNUE
     Route: 013
     Dates: start: 20190219, end: 20190219

REACTIONS (3)
  - Hypotension [Recovered/Resolved]
  - Urticaria [Recovered/Resolved]
  - Anaphylactic shock [Recovered/Resolved]

NARRATIVE: CASE EVENT DATE: 20190219
